FAERS Safety Report 8227359-1 (Version None)
Quarter: 2012Q1

REPORT INFORMATION
  Report Type: 
  Country: None (occurrence: None)
  Receive Date: 20120322
  Receipt Date: 20120312
  Transmission Date: 20120608
  Serious: Yes (Hospitalization)
  Sender: FDA-Public Use
  Company Number: US-BAYER-2011-110247

PATIENT
  Age: 16 Year
  Sex: Female
  Weight: 86.168 kg

DRUGS (16)
  1. NASONEX [Concomitant]
     Dosage: 50 ?G, BID
     Route: 045
     Dates: start: 20051221, end: 20110622
  2. IMODIUM A-D [Concomitant]
     Dosage: 2 MG, 1 TABLET EVERY 4 HOURS FOR 7 DAYS
     Dates: start: 20110322
  3. ACYCLOVIR [Concomitant]
     Indication: PYREXIA
     Dosage: 200 MG, 1 CAPSULE 4 TIMES A DAY
     Dates: start: 20110303
  4. BACTRIM DS [Concomitant]
     Dosage: 800-160 MG 1 TABLET 2 TIMES A DAY FOR 10 DAYS
     Dates: start: 20101214, end: 20110504
  5. CERON-DM [Concomitant]
     Indication: COUGH
     Dosage: 4 MG-15 MG-12.5 MG PER 5 ML
     Dates: start: 20110303
  6. YAZ [Suspect]
     Indication: PREMENSTRUAL SYNDROME
     Dosage: 1 DF, QD
     Route: 048
     Dates: start: 20080415, end: 20100315
  7. CALCIUM +VIT D [Concomitant]
     Dosage: 500 MG-125 MG, QD
     Dates: start: 20100901, end: 20110622
  8. NAPROSYN [Concomitant]
     Indication: INFLAMMATION
     Dosage: 375 MG, 2 TIMES A DAY P.R.N.
     Dates: start: 20100901
  9. VITAMIN D [Concomitant]
     Dosage: 2 Q.D.
     Dates: start: 20110523, end: 20110622
  10. ACYCLOVIR [Concomitant]
     Indication: ORAL HERPES
  11. SINGULAIR [Concomitant]
     Dosage: 10 MG, Q H.S
     Dates: start: 20110523, end: 20110622
  12. ZANTAC [Concomitant]
     Indication: DYSPEPSIA
     Dosage: 150 MG, BID
     Dates: start: 20080101
  13. GUAIFENESIN [Concomitant]
     Dosage: 600 MG,EXTENDED RELEASE, 1 TO 2 TABLETS EVERY 12 HOURS
     Dates: start: 20090126, end: 20101202
  14. ACYCLOVIR [Concomitant]
     Indication: BLISTER
  15. CERON-DM [Concomitant]
     Indication: NASAL CONGESTION
     Dosage: 5 ML EVERY 6 HOURS FOR 10 DAYS P.R.N.
     Dates: start: 20110303
  16. HYOSCYAMINE SULFATE [Concomitant]
     Dosage: 0.375 MG EXTENDED RELEASE, 1 Q 12 HOURS
     Dates: start: 20110322, end: 20110622

REACTIONS (6)
  - ANXIETY [None]
  - VOMITING [None]
  - CHOLECYSTITIS [None]
  - ABDOMINAL PAIN UPPER [None]
  - DIARRHOEA [None]
  - INJURY [None]
